FAERS Safety Report 6258246-6 (Version None)
Quarter: 2009Q3

REPORT INFORMATION
  Report Type: 
  Country: None (occurrence: None)
  Receive Date: 20090707
  Receipt Date: 20090629
  Transmission Date: 20100115
  Serious: Yes (Hospitalization)
  Sender: FDA-Public Use
  Company Number: JP-BRISTOL-MYERS SQUIBB COMPANY-14690150

PATIENT
  Age: 63 Year
  Sex: Male
  Weight: 61 kg

DRUGS (6)
  1. ERBITUX [Suspect]
     Indication: COLON CANCER
     Dosage: 250MG/M2,1IN1 WK FROM 20JAN09;21APR09 RECEIVED 12TH INFUSION.
     Route: 042
     Dates: start: 20090113, end: 20090113
  2. IRINOTECAN HCL [Concomitant]
     Indication: COLON CANCER
     Dosage: 21APR09:6TH INFUSION
     Route: 042
     Dates: start: 20090113
  3. POLARAMINE [Concomitant]
     Indication: PREMEDICATION
     Dosage: 1DOSAGEFORM=1AMPOULE
     Route: 042
     Dates: start: 20090113
  4. DECADRON [Concomitant]
     Indication: PREMEDICATION
     Route: 042
     Dates: start: 20090113
  5. GRANISETRON HCL [Concomitant]
     Indication: ANTIEMETIC SUPPORTIVE CARE
     Route: 042
     Dates: start: 20090113
  6. MAGNESIUM OXIDE [Concomitant]
     Indication: CONSTIPATION
     Route: 048
     Dates: start: 20080101

REACTIONS (3)
  - DECREASED APPETITE [None]
  - DRUG INEFFECTIVE [None]
  - VOMITING [None]
